FAERS Safety Report 7979581-7 (Version None)
Quarter: 2011Q4

REPORT INFORMATION
  Report Type: 
  Country: None (occurrence: None)
  Receive Date: 20111213
  Receipt Date: 20111213
  Transmission Date: 20120403
  Serious: Yes (Hospitalization)
  Sender: FDA-Public Use
  Company Number: None

PATIENT
  Age: 60 Year
  Sex: Male
  Weight: 133 kg

DRUGS (2)
  1. SIMVASTATIN [Suspect]
     Indication: HYPERLIPIDAEMIA
     Dosage: 40 MG EVERY DAY PO
     Route: 048
     Dates: start: 20070804, end: 20101003
  2. DAPTOMYCIN [Suspect]
     Indication: ARTHRITIS BACTERIAL
     Dosage: 900 MG EVERY DAY IV
     Route: 042
     Dates: start: 20110927, end: 20111008

REACTIONS (1)
  - RHABDOMYOLYSIS [None]
